FAERS Safety Report 20593543 (Version 1)
Quarter: 2022Q1

REPORT INFORMATION
  Report Type: Spontaneous
  Country: US (occurrence: US)
  Receive Date: 20220315
  Receipt Date: 20220315
  Transmission Date: 20220423
  Serious: No
  Sender: FDA-Public Use
  Company Number: US-TEVA-2022-US-2010367

PATIENT
  Age: 43 Year
  Sex: Female

DRUGS (6)
  1. PENICILLIN [Suspect]
     Active Substance: PENICILLIN
     Route: 065
  2. OXYCODONE [Suspect]
     Active Substance: OXYCODONE
     Route: 065
  3. COBALT [Suspect]
     Active Substance: COBALT
     Route: 065
  4. TETANUS TOXOIDS [Suspect]
     Active Substance: TETANUS TOXOIDS
     Route: 065
  5. DIFLUCAN [Concomitant]
     Active Substance: FLUCONAZOLE
     Dosage: TAKE 1 TABLET (200 MG TOTAL) BY MOUTH DAILY
     Route: 048
  6. Venlafaxine (Effexor-XR) [Concomitant]
     Dosage: TAKE 37.5 MG BY MOUTH EVERY MORNING
     Route: 048

REACTIONS (3)
  - Pruritus [Not Recovered/Not Resolved]
  - Urticaria [Unknown]
  - Drug hypersensitivity [Unknown]

NARRATIVE: CASE EVENT DATE: 20061023
